FAERS Safety Report 12772672 (Version 3)
Quarter: 2016Q4

REPORT INFORMATION
  Report Type: Spontaneous
  Country: RU (occurrence: RU)
  Receive Date: 20160922
  Receipt Date: 20161104
  Transmission Date: 20170207
  Serious: Yes (Hospitalization)
  Sender: FDA-Public Use
  Company Number: PHHY2016RU130210

PATIENT
  Age: 55 Year
  Sex: Female

DRUGS (5)
  1. EXFORGE [Suspect]
     Active Substance: AMLODIPINE BESYLATE\VALSARTAN
     Indication: ESSENTIAL HYPERTENSION
     Dosage: 160/5/12.5 OT, UNK
     Route: 065
  2. ARIFON [Concomitant]
     Indication: ESSENTIAL HYPERTENSION
     Route: 065
  3. PHYSIOTENS [Concomitant]
     Active Substance: MOXONIDINE
     Indication: ESSENTIAL HYPERTENSION
     Route: 065
  4. EXFORGE [Suspect]
     Active Substance: AMLODIPINE BESYLATE\VALSARTAN
     Dosage: 160/10/12.5 OT, UNK
     Route: 065
  5. VEROSPIRON [Concomitant]
     Active Substance: SPIRONOLACTONE
     Indication: ESSENTIAL HYPERTENSION
     Route: 065

REACTIONS (2)
  - Hypertensive crisis [Recovering/Resolving]
  - Drug ineffective [Recovering/Resolving]
